FAERS Safety Report 9175719 (Version 1)
Quarter: 2013Q1

REPORT INFORMATION
  Report Type: Spontaneous
  Country: US (occurrence: US)
  Receive Date: 20130320
  Receipt Date: 20130320
  Transmission Date: 20140127
  Serious: Yes (Other)
  Sender: FDA-Public Use
  Company Number: US-PFIZER INC-2013090625

PATIENT
  Sex: Female

DRUGS (3)
  1. LIPITOR [Suspect]
     Dosage: UNK
     Dates: start: 2010
  2. LIPITOR [Suspect]
     Dosage: UNK
     Dates: start: 2013
  3. ATORVASTATIN CALCIUM [Suspect]
     Dosage: 10 MG, UNK
     Dates: start: 20130204, end: 2013

REACTIONS (4)
  - Throat tightness [Unknown]
  - Dysphagia [Unknown]
  - Head discomfort [Unknown]
  - Oropharyngeal discomfort [Unknown]
